FAERS Safety Report 13339185 (Version 2)
Quarter: 2017Q2

REPORT INFORMATION
  Report Type: Spontaneous
  Country: US (occurrence: US)
  Receive Date: 20170315
  Receipt Date: 20170428
  Transmission Date: 20170830
  Serious: No
  Sender: FDA-Public Use
  Company Number: US-PFIZER INC-2017111738

PATIENT
  Age: 2 Year
  Sex: Male

DRUGS (1)
  1. EUCRISA [Suspect]
     Active Substance: CRISABOROLE
     Indication: DERMATITIS ATOPIC
     Dosage: UNK
     Route: 061
     Dates: start: 20170302, end: 20170302

REACTIONS (5)
  - Burning sensation [Recovered/Resolved]
  - Pain [Unknown]
  - Emotional disorder [Unknown]
  - Rash [Recovered/Resolved]
  - Crying [Unknown]
